FAERS Safety Report 20428223 (Version 3)
Quarter: 2023Q2

REPORT INFORMATION
  Report Type: Spontaneous
  Country: GB (occurrence: GB)
  Receive Date: 20220204
  Receipt Date: 20230601
  Transmission Date: 20230721
  Serious: Yes (Other)
  Sender: FDA-Public Use
  Company Number: GB-MHRA-EYC 00271772

PATIENT
  Sex: Female

DRUGS (22)
  1. TRAMADOL [Suspect]
     Active Substance: TRAMADOL
     Indication: Ill-defined disorder
     Dosage: UNK
     Route: 048
     Dates: start: 202201, end: 20220120
  2. COCODAMOL [Suspect]
     Active Substance: ACETAMINOPHEN\CODEINE PHOSPHATE
     Indication: Ill-defined disorder
     Dosage: UNK
     Route: 048
     Dates: start: 20220117
  3. LANSOPRAZOLE [Suspect]
     Active Substance: LANSOPRAZOLE
     Indication: Ill-defined disorder
     Dosage: UNK
     Route: 048
     Dates: start: 20211222, end: 20220114
  4. ACYCLOVIR [Concomitant]
     Active Substance: ACYCLOVIR
     Indication: Ill-defined disorder
     Dosage: UNK
     Route: 065
  5. ARIPIPRAZOLE [Concomitant]
     Active Substance: ARIPIPRAZOLE
     Indication: Ill-defined disorder
     Dosage: UNK
     Route: 065
  6. ASPIRIN [Concomitant]
     Active Substance: ASPIRIN
     Indication: Ill-defined disorder
     Dosage: UNK
     Route: 065
  7. ATORVASTATIN [Concomitant]
     Active Substance: ATORVASTATIN
     Indication: Ill-defined disorder
     Dosage: UNK
     Route: 065
  8. PENICILLIN V [Concomitant]
     Active Substance: PENICILLIN V
     Indication: Ill-defined disorder
     Dosage: UNK
     Route: 065
  9. SENOKOT [Concomitant]
     Active Substance: SENNOSIDES
     Indication: Ill-defined disorder
     Dosage: UNK
     Route: 065
  10. VITAMIN D [Concomitant]
     Active Substance: VITAMIN D NOS
     Indication: Ill-defined disorder
     Dosage: UNK
     Route: 065
  11. MOVICOL [Concomitant]
     Active Substance: POLYETHYLENE GLYCOL 3350\POTASSIUM CHLORIDE\SODIUM BICARBONATE\SODIUM CHLORIDE
     Indication: Product used for unknown indication
     Dosage: UNK
     Route: 065
  12. Strepsils [Concomitant]
     Indication: Product used for unknown indication
     Dosage: UNK
     Route: 065
  13. VAGIFEM [Concomitant]
     Active Substance: ESTRADIOL
     Indication: Product used for unknown indication
     Dosage: UNK
     Route: 065
  14. ACETAMINOPHEN\CODEINE PHOSPHATE [Concomitant]
     Active Substance: ACETAMINOPHEN\CODEINE PHOSPHATE
     Indication: Product used for unknown indication
     Dosage: UNK
     Route: 065
  15. GABAPENTIN [Concomitant]
     Active Substance: GABAPENTIN
     Indication: Product used for unknown indication
     Dosage: UNK
     Route: 065
  16. CHOLECALCIFEROL [Concomitant]
     Active Substance: CHOLECALCIFEROL
     Indication: Product used for unknown indication
     Dosage: UNK
     Route: 065
  17. TRAMADOL [Concomitant]
     Active Substance: TRAMADOL
     Indication: Product used for unknown indication
     Dosage: UNK
     Route: 065
  18. BENZYDAMINE HYDROCHLORIDE [Concomitant]
     Active Substance: BENZYDAMINE HYDROCHLORIDE
     Indication: Product used for unknown indication
     Dosage: UNK
     Route: 065
  19. LANSOPRAZOLE [Concomitant]
     Active Substance: LANSOPRAZOLE
     Indication: Product used for unknown indication
     Dosage: UNK
     Route: 065
  20. MORPHINE [Concomitant]
     Active Substance: MORPHINE
     Indication: Product used for unknown indication
     Dosage: UNK
     Route: 065
  21. CANNABIS SATIVA SUBSP. INDICA TOP [Concomitant]
     Active Substance: CANNABIS SATIVA SUBSP. INDICA TOP
     Indication: Product used for unknown indication
     Dosage: UNK
     Route: 065
  22. ACETAMINOPHEN [Concomitant]
     Active Substance: ACETAMINOPHEN
     Indication: Product used for unknown indication
     Dosage: UNK
     Route: 065

REACTIONS (16)
  - Rash [Not Recovered/Not Resolved]
  - Neck pain [Recovering/Resolving]
  - Arthralgia [Recovering/Resolving]
  - Pain in extremity [Recovering/Resolving]
  - Dry mouth [Not Recovered/Not Resolved]
  - Somnolence [Not Recovered/Not Resolved]
  - Constipation [Not Recovered/Not Resolved]
  - Headache [Not Recovered/Not Resolved]
  - Fatigue [Not Recovered/Not Resolved]
  - Confusional state [Not Recovered/Not Resolved]
  - Dizziness [Not Recovered/Not Resolved]
  - Dysuria [Not Recovered/Not Resolved]
  - Dysphagia [Not Recovered/Not Resolved]
  - Herpes zoster [Unknown]
  - Leukaemia [Unknown]
  - Partial seizures [Recovered/Resolved]

NARRATIVE: CASE EVENT DATE: 20220110
